FAERS Safety Report 8869840 (Version 1)
Quarter: 2012Q4

REPORT INFORMATION
  Report Type: 
  Country: FR (occurrence: FR)
  Receive Date: 20121028
  Receipt Date: 20121028
  Transmission Date: 20130627
  Serious: Yes (Other)
  Sender: FDA-Public Use
  Company Number: FR-JNJFOC-20121011854

PATIENT
  Age: 48 Year

DRUGS (3)
  1. PREZISTA [Suspect]
     Indication: HIV INFECTION
     Route: 065
     Dates: start: 20120831
  2. PREZISTA [Suspect]
     Indication: HIV INFECTION
     Route: 065
     Dates: start: 20120131
  3. PREZISTA [Suspect]
     Indication: HIV INFECTION
     Route: 065
     Dates: start: 20110912, end: 20120115

REACTIONS (3)
  - Pericarditis [Recovering/Resolving]
  - Cardiac disorder [Recovering/Resolving]
  - Adverse event [Recovering/Resolving]
